FAERS Safety Report 6292327 (Version 2)
Quarter: 2020Q4

REPORT INFORMATION
  Report Type: Spontaneous
  Country: FR (occurrence: FR)
  Receive Date: 20070403
  Receipt Date: 20201204
  Transmission Date: 20210114
  Serious: Yes (Hospitalization)
  Sender: FDA-Public Use
  Company Number: GXKR2007FR02720

PATIENT
  Age: 67 Year
  Sex: Female

DRUGS (4)
  1. AMITRIPTYLINE [Concomitant]
     Active Substance: AMITRIPTYLINE
     Indication: PAIN
     Dosage: 100 MG, QD
     Route: 065
  2. NAPROXEN. [Concomitant]
     Active Substance: NAPROXEN
     Indication: PAIN
     Dosage: 500 MG, QD
     Route: 065
  3. GABAPENTIN. [Suspect]
     Active Substance: GABAPENTIN
     Indication: ANALGESIC THERAPY
     Dosage: 3600-7200 MG/DAY
     Route: 065
  4. GABAPENTIN. [Suspect]
     Active Substance: GABAPENTIN
     Dosage: INCREASED THE DOSE PROGRESSIVELY UNTIL 4800 MG DAILY,THEREAFTER 7200 MG DAILY
     Route: 065

REACTIONS (8)
  - Exophthalmos [Unknown]
  - Tremor [Unknown]
  - Agitation [Unknown]
  - Withdrawal syndrome [Unknown]
  - Overdose [Unknown]
  - Hyperhidrosis [Unknown]
  - Pallor [Unknown]
  - Drug abuse [Not Recovered/Not Resolved]

NARRATIVE: CASE EVENT DATE: 200504
